FAERS Safety Report 25106607 (Version 1)
Quarter: 2025Q1

REPORT INFORMATION
  Report Type: Spontaneous
  Country: US (occurrence: US)
  Receive Date: 20250321
  Receipt Date: 20250321
  Transmission Date: 20250408
  Serious: No
  Sender: BAUSCH AND LOMB
  Company Number: US-BAUSCHBL-2025BNL004589

PATIENT
  Sex: Female

DRUGS (1)
  1. MIEBO [Suspect]
     Active Substance: PERFLUOROHEXYLOCTANE
     Indication: Dry eye
     Dosage: 1 DROP IN EACH EYE 4 TIMES A DAY
     Route: 047
     Dates: start: 202503, end: 202503

REACTIONS (6)
  - Headache [Recovered/Resolved]
  - Dacryostenosis acquired [Recovering/Resolving]
  - Vision blurred [Recovered/Resolved]
  - Product complaint [Unknown]
  - Product knowledge deficit [Unknown]
  - Product packaging quantity issue [Unknown]

NARRATIVE: CASE EVENT DATE: 20250301
